FAERS Safety Report 6580454-5 (Version None)
Quarter: 2010Q1

REPORT INFORMATION
  Report Type: 
  Country: None (occurrence: None)
  Receive Date: 20100203
  Receipt Date: 20100118
  Transmission Date: 20100710
  Serious: Yes (Death)
  Sender: FDA-Public Use
  Company Number: B0627834A

PATIENT
  Age: 76 Year
  Sex: Female

DRUGS (3)
  1. PAROXETINE HCL [Suspect]
     Dosage: ORAL
     Route: 048
  2. MEMANTINE HYDROCHLORIDE [Suspect]
     Dosage: ORAL
     Route: 048
  3. LORAZEPAM [Suspect]
     Dosage: ORAL
     Route: 048

REACTIONS (1)
  - ACCIDENTAL EXPOSURE [None]
